FAERS Safety Report 4614747-5 (Version None)
Quarter: 2005Q2

REPORT INFORMATION
  Report Type: 
  Country: None (occurrence: None)
  Receive Date: 20050311
  Receipt Date: 20041102
  Transmission Date: 20051028
  Serious: No
  Sender: FDA-Public Use
  Company Number: 2004-BP-11346BP

PATIENT
  Age: 70 Year
  Sex: Male
  Weight: 99.79 kg

DRUGS (9)
  1. SPIRIVA [Suspect]
     Indication: CHRONIC OBSTRUCTIVE PULMONARY DISEASE
     Dosage: 18 MCG (18 MCG, 1 IN 1 D), IH
     Route: 055
     Dates: start: 20040601, end: 20040901
  2. ADVAIR DISKUS 100/50 [Concomitant]
  3. PREDNISONE [Concomitant]
  4. ALBUTEROL (SALMETEROL) [Concomitant]
  5. KOPENEX (LEVOSALBUTAMOL) [Concomitant]
  6. INTAL [Concomitant]
  7. NEXIUM [Concomitant]
  8. SINGULAIR (MONTELUKAST) [Concomitant]
  9. LEVAQUIN [Concomitant]

REACTIONS (1)
  - URINARY RETENTION [None]
